FAERS Safety Report 20419107 (Version 1)
Quarter: 2022Q1

REPORT INFORMATION
  Report Type: Spontaneous
  Country: US (occurrence: US)
  Receive Date: 20220203
  Receipt Date: 20220203
  Transmission Date: 20220424
  Serious: Yes (Other)
  Sender: FDA-Public Use
  Company Number: US-AMGEN-USASP2022013863

PATIENT
  Age: 79 Year
  Sex: Male

DRUGS (5)
  1. XGEVA [Suspect]
     Active Substance: DENOSUMAB
     Indication: Renal cell carcinoma
     Dosage: 120 MILLIGRAM, Q6WK
     Route: 058
  2. KEYTRUDA [Concomitant]
     Active Substance: PEMBROLIZUMAB
     Indication: Renal cell carcinoma
     Dosage: 200 MILLIGRAM, Q3WK
     Route: 042
     Dates: start: 20201014
  3. INLYTA [Concomitant]
     Active Substance: AXITINIB
     Indication: Renal cell carcinoma
     Dosage: 2 MILLIGRAM, BID
     Dates: start: 202010
  4. INLYTA [Concomitant]
     Active Substance: AXITINIB
     Dosage: 3 MILLIGRAM, BID
  5. INLYTA [Concomitant]
     Active Substance: AXITINIB
     Dosage: 2 MILLIGRAM, QD

REACTIONS (3)
  - Atrial fibrillation [Unknown]
  - Insomnia [Unknown]
  - Decreased appetite [Unknown]
